FAERS Safety Report 9370184 (Version 3)
Quarter: 2014Q3

REPORT INFORMATION
  Report Type: Spontaneous
  Country: US (occurrence: None)
  Receive Date: 20130624
  Receipt Date: 20140716
  Transmission Date: 20150326
  Serious: Yes (Life-Threatening, Hospitalization, Other)
  Sender: FDA-Public Use
  Company Number: 20130306

PATIENT
  Age: 80 Year
  Sex: Male

DRUGS (5)
  1. DONEPEZIL [Concomitant]
     Active Substance: DONEPEZIL
  2. AMLODIPINE [Concomitant]
     Active Substance: AMLODIPINE BESYLATE
  3. INSULIN [Concomitant]
     Active Substance: INSULIN NOS
  4. OLANZAPINE. [Suspect]
     Active Substance: OLANZAPINE
     Indication: BIPOLAR DISORDER
  5. ASPIRIN. [Concomitant]
     Active Substance: ASPIRIN

REACTIONS (8)
  - Heart rate decreased [None]
  - Renal failure acute [None]
  - Hypothermia [None]
  - Disorientation [None]
  - Sepsis [None]
  - Blood potassium increased [None]
  - Respiratory distress [None]
  - Renal tubular necrosis [None]
